FAERS Safety Report 4451404-2 (Version None)
Quarter: 2004Q3

REPORT INFORMATION
  Report Type: 
  Country: None (occurrence: None)
  Receive Date: 20040915
  Receipt Date: 20040901
  Transmission Date: 20050211
  Serious: Yes (Hospitalization)
  Sender: FDA-Public Use
  Company Number: 04P-163-0263869-00

PATIENT
  Age: 40 Year
  Sex: Female
  Weight: 73.9363 kg

DRUGS (10)
  1. HUMIRA [Suspect]
     Indication: RHEUMATOID ARTHRITIS
     Dosage: 40 MG, 1 IN 1 M, SUBCUTANEOUS
     Route: 058
     Dates: start: 20030401, end: 20040601
  2. CELECOXIB [Suspect]
     Indication: RHEUMATOID ARTHRITIS
     Dosage: 200 MG, 1 IN 1 D
     Dates: end: 20040601
  3. METHOTREXATE SODIUM [Concomitant]
  4. OXYCOCET [Concomitant]
  5. CO-DIOVAN [Concomitant]
  6. RABAPRAZOLE SODIUM [Concomitant]
  7. ALNDRONATE SODIUM [Concomitant]
  8. FOLIC ACID [Concomitant]
  9. HYDROCHLOROQUINE PHOSPHA [Concomitant]
  10. PREDNISONE [Concomitant]

REACTIONS (20)
  - ANHEDONIA [None]
  - APATHY [None]
  - APHASIA [None]
  - ASTHENIA [None]
  - CYANOSIS [None]
  - DEPRESSION [None]
  - DYSPHEMIA [None]
  - EYELID DISORDER [None]
  - FALL [None]
  - FEELING GUILTY [None]
  - FLAT AFFECT [None]
  - HUMERUS FRACTURE [None]
  - HYPOAESTHESIA [None]
  - HYPOTENSION [None]
  - INSOMNIA [None]
  - LUMBAR PUNCTURE HEADACHE [None]
  - MENINGITIS LEPTOSPIRAL [None]
  - NEUROLOGICAL SYMPTOM [None]
  - PACHYMENINGITIS [None]
  - SPEECH DISORDER [None]
